FAERS Safety Report 23099958 (Version 1)
Quarter: 2023Q4

REPORT INFORMATION
  Report Type: Spontaneous
  Country: US (occurrence: None)
  Receive Date: 20231023
  Receipt Date: 20231023
  Transmission Date: 20240109
  Serious: Yes (Other)
  Sender: FDA-Public Use
  Company Number: None

PATIENT
  Age: 29 Year
  Sex: Male
  Weight: 106 kg

DRUGS (3)
  1. CLONIDINE [Suspect]
     Active Substance: CLONIDINE
     Indication: Anxiety
     Dosage: FREQUENCY : AT BEDTIME;?
     Route: 048
     Dates: start: 20230922, end: 20230925
  2. QUETIAPINE [Concomitant]
     Active Substance: QUETIAPINE
  3. LITHIUM [Concomitant]
     Active Substance: LITHIUM

REACTIONS (3)
  - Aggression [None]
  - Therapy cessation [None]
  - Agitation [None]
